FAERS Safety Report 9714922 (Version 2)
Quarter: 2013Q4

REPORT INFORMATION
  Report Type: Spontaneous
  Country: FR (occurrence: None)
  Receive Date: 20131125
  Receipt Date: 20131230
  Transmission Date: 20140711
  Serious: Yes (Hospitalization)
  Sender: FDA-Public Use
  Company Number: SYM-2013-12839

PATIENT
  Age: 77 Year
  Sex: Male

DRUGS (4)
  1. FLAGYL [Suspect]
     Indication: CLOSTRIDIUM DIFFICILE INFECTION
     Route: 048
     Dates: start: 20130908, end: 20130913
  2. TIENAM [Suspect]
     Route: 041
     Dates: start: 20130731, end: 20130906
  3. TAZOCILLINE (PIP/TAZO) (PIPERACILIN SODIUM, TAZOBACTAM SODIUM0 [Concomitant]
  4. AMIKLIN (AMIKACIN) (AMIKACIN) [Concomitant]

REACTIONS (5)
  - Pancytopenia [None]
  - Abdominal pain [None]
  - Diarrhoea [None]
  - Hyperthermia [None]
  - Clostridium test positive [None]
